FAERS Safety Report 10395837 (Version 1)
Quarter: 2014Q1

REPORT INFORMATION
  Report Type: Spontaneous
  Country: US (occurrence: None)
  Receive Date: 20130724
  Receipt Date: 20130724
  Transmission Date: 20141002
  Serious: Yes (Hospitalization)
  Sender: FDA-Public Use
  Company Number: PHEH2012US008619

PATIENT
  Age: 10 Year
  Sex: Male
  Weight: 30.84 kg

DRUGS (5)
  1. GLEEVEC (IMATINIB) TABLET, 100MG [Suspect]
     Route: 048
     Dates: start: 20120111
  2. MERCAPTOPURINE [Concomitant]
  3. MERCAPTOPURINE [Concomitant]
  4. METHOTREXATE [Concomitant]
  5. METHOTREXATE [Concomitant]

REACTIONS (8)
  - Skin candida [None]
  - Neutropenia [None]
  - Pyrexia [None]
  - Leukopenia [None]
  - Anaemia [None]
  - Thrombocytopenia [None]
  - Nausea [None]
  - Vomiting [None]
